FAERS Safety Report 9335818 (Version 5)
Quarter: 2014Q1

REPORT INFORMATION
  Report Type: Spontaneous
  Country: US (occurrence: US)
  Receive Date: 20130606
  Receipt Date: 20140119
  Transmission Date: 20141002
  Serious: Yes (Hospitalization, Other)
  Sender: FDA-Public Use
  Company Number: US-009507513-1305USA017096

PATIENT
  Sex: Female
  Weight: 70.75 kg

DRUGS (5)
  1. FOSAMAX [Suspect]
     Indication: OSTEOPENIA
     Dosage: 70 MG, QW
     Route: 048
     Dates: start: 2000, end: 201103
  2. FOSAMAX [Suspect]
     Dosage: 10 MG, QD
     Route: 048
  3. ALENDRONATE SODIUM [Suspect]
     Indication: OSTEOPENIA
     Dosage: 70 MG, QW
     Route: 048
  4. TETANUS TOXOID [Concomitant]
     Dosage: UNK
     Route: 030
     Dates: start: 20100901, end: 20100901
  5. DIPHTHERIA TOXOID [Concomitant]
     Dosage: UNK
     Route: 030
     Dates: start: 20100901, end: 20100901

REACTIONS (40)
  - Femur fracture [Unknown]
  - Femur fracture [Unknown]
  - Intramedullary rod insertion [Unknown]
  - Surgery [Unknown]
  - Hypothyroidism [Unknown]
  - Inappropriate schedule of drug administration [Unknown]
  - Muscular weakness [Unknown]
  - Dysphonia [Unknown]
  - Lumbar spinal stenosis [Unknown]
  - Pelvic pain [Unknown]
  - Skin disorder [Unknown]
  - Sinus disorder [Unknown]
  - Haemorrhoid operation [Unknown]
  - Appendicectomy [Unknown]
  - Ovarian cyst [Unknown]
  - Oophorectomy [Unknown]
  - Autoimmune thyroiditis [Unknown]
  - Skin exfoliation [Unknown]
  - Spider vein [Unknown]
  - Cerumen impaction [Recovered/Resolved]
  - Osteoarthritis [Unknown]
  - Eustachian tube dysfunction [Unknown]
  - Senile osteoporosis [Unknown]
  - Foot fracture [Recovered/Resolved]
  - Intervertebral disc protrusion [Unknown]
  - Wrist fracture [Unknown]
  - Ovarian cystectomy [Unknown]
  - Wrist fracture [Unknown]
  - Osteoporosis [Unknown]
  - Chondropathy [Unknown]
  - Bursitis [Unknown]
  - Medical device pain [Unknown]
  - Cyst [Unknown]
  - Pain in extremity [Unknown]
  - Pain in extremity [Recovered/Resolved]
  - Arthralgia [Unknown]
  - Gastrooesophageal reflux disease [Recovering/Resolving]
  - Back pain [Not Recovered/Not Resolved]
  - Drug ineffective [Unknown]
  - Oesophagitis [Unknown]
